FAERS Safety Report 7170177-6 (Version None)
Quarter: 2010Q4

REPORT INFORMATION
  Report Type: 
  Country: None (occurrence: None)
  Receive Date: 20101214
  Receipt Date: 20101214
  Transmission Date: 20110411
  Serious: Yes (Life-Threatening)
  Sender: FDA-Public Use
  Company Number: None

PATIENT
  Sex: Female
  Weight: 76.2043 kg

DRUGS (2)
  1. PROPOXYPHENE NAPSYLATE [Suspect]
     Indication: BACK DISORDER
     Dosage: 3 A DAY
  2. PROPOXYPHENE NAPSYLATE [Suspect]
     Indication: BACK PAIN
     Dosage: 3 A DAY

REACTIONS (7)
  - ABDOMINAL PAIN UPPER [None]
  - CHEST PAIN [None]
  - DYSURIA [None]
  - HEART RATE INCREASED [None]
  - HYPERSENSITIVITY [None]
  - ORAL DISCOMFORT [None]
  - PRURITUS [None]
